FAERS Safety Report 19752390 (Version 1)
Quarter: 2021Q3

REPORT INFORMATION
  Report Type: Report from Study
  Country: GB (occurrence: GB)
  Receive Date: 20210827
  Receipt Date: 20210827
  Transmission Date: 20211014
  Serious: Yes (Hospitalization)
  Sender: FDA-Public Use
  Company Number: GB-ONCOPEPPR-00863

PATIENT
  Age: 74 Year
  Sex: Male

DRUGS (3)
  1. MELFLUFEN [Suspect]
     Active Substance: MELPHALAN FLUFENAMIDE HYDROCHLORIDE
     Indication: PLASMA CELL MYELOMA
     Dosage: TIME INTERVAL: CYCLICAL; NOT REPORTED
     Route: 065
     Dates: start: 20210611
  2. MELFLUFEN [Suspect]
     Active Substance: MELPHALAN FLUFENAMIDE HYDROCHLORIDE
     Indication: PLASMA CELL MYELOMA
     Dosage: TIME INTERVAL: CYCLICAL; NOT REPORTED
     Route: 065
     Dates: start: 20210709
  3. MELFLUFEN [Suspect]
     Active Substance: MELPHALAN FLUFENAMIDE HYDROCHLORIDE
     Indication: PLASMA CELL MYELOMA
     Dosage: TIME INTERVAL: CYCLICAL; NOT REPORTED
     Route: 065
     Dates: start: 20210803

REACTIONS (4)
  - Hypotension [Unknown]
  - Staphylococcal bacteraemia [Recovered/Resolved]
  - Pyrexia [Unknown]
  - Device related infection [Unknown]

NARRATIVE: CASE EVENT DATE: 20210711
